FAERS Safety Report 9994564 (Version 1)
Quarter: 2014Q1

REPORT INFORMATION
  Report Type: Spontaneous
  Country: US (occurrence: US)
  Receive Date: 20140311
  Receipt Date: 20140311
  Transmission Date: 20141002
  Serious: No
  Sender: FDA-Public Use
  Company Number: US-009507513-1403USA004082

PATIENT
  Age: 59 Year
  Sex: Male

DRUGS (2)
  1. ASMANEX TWISTHALER [Suspect]
     Indication: ASTHMA
     Dosage: 1 INHALATION DAILY, STANDARD DOSE CANISTER OF 0.135
     Route: 055
     Dates: start: 20140304, end: 20140306
  2. ASMANEX TWISTHALER [Suspect]
     Indication: HYPERSENSITIVITY

REACTIONS (3)
  - Euphoric mood [Recovered/Resolved]
  - Product quality issue [Unknown]
  - Overdose [Unknown]
